FAERS Safety Report 4479592-2 (Version None)
Quarter: 2004Q4

REPORT INFORMATION
  Report Type: 
  Country: None (occurrence: None)
  Receive Date: 20041018
  Receipt Date: 20041008
  Transmission Date: 20050328
  Serious: Yes (Hospitalization)
  Sender: FDA-Public Use
  Company Number: 2004-08-0789

PATIENT
  Age: 57 Year
  Sex: Male

DRUGS (5)
  1. AIROMIR HFA ORAL AEROSOL (SALBUTAMOL SULFATE) 'LIKE PROVENTIL HFA' [Suspect]
     Indication: CHRONIC OBSTRUCTIVE AIRWAYS DISEASE
     Dosage: 100MCG/PRNORAL AER INH
     Route: 055
     Dates: start: 20040121
  2. EMCONCOR [Concomitant]
  3. TIOTROPIUM BROMIDE [Concomitant]
  4. PLACEBO [Concomitant]
  5. ALCOHOL [Concomitant]

REACTIONS (2)
  - ATRIAL FIBRILLATION [None]
  - ATRIAL FLUTTER [None]
